FAERS Safety Report 19193482 (Version 1)
Quarter: 2021Q2

REPORT INFORMATION
  Report Type: Spontaneous
  Country: CA (occurrence: CA)
  Receive Date: 20210428
  Receipt Date: 20210428
  Transmission Date: 20210717
  Serious: No
  Sender: FDA-Public Use
  Company Number: CA-LUPIN PHARMACEUTICALS INC.-2021-05151

PATIENT
  Age: 30 Year
  Sex: Female
  Weight: 58 kg

DRUGS (12)
  1. LIDOCAINE. [Suspect]
     Active Substance: LIDOCAINE
     Indication: LOCAL ANAESTHESIA
     Dosage: UNK
     Route: 065
  2. SODIUM CITRATE. [Suspect]
     Active Substance: SODIUM CITRATE
     Indication: PROPHYLAXIS
  3. ATROPINE. [Suspect]
     Active Substance: ATROPINE
     Indication: INCREASED BRONCHIAL SECRETION
  4. FAMOTIDINE. [Suspect]
     Active Substance: FAMOTIDINE
     Indication: HYPERCHLORHYDRIA
  5. SEVOFLURANE. [Suspect]
     Active Substance: SEVOFLURANE
     Indication: MAINTENANCE OF ANAESTHESIA
     Dosage: UNK
  6. FAMOTIDINE. [Suspect]
     Active Substance: FAMOTIDINE
     Indication: PROPHYLAXIS
     Dosage: 20 MILLIGRAM?THE NIGHT BEFORE AND IN THE MORNING OF OPERATION
     Route: 048
  7. DEXAMETHASONE. [Suspect]
     Active Substance: DEXAMETHASONE
     Indication: STEROID THERAPY
     Dosage: UNK
     Route: 065
  8. ATROPINE. [Suspect]
     Active Substance: ATROPINE
     Indication: ANAESTHETIC PREMEDICATION
     Dosage: 0.3 MILLIGRAM
     Route: 065
  9. SODIUM CITRATE. [Suspect]
     Active Substance: SODIUM CITRATE
     Indication: HYPERCHLORHYDRIA
     Dosage: 30 MILLILITER, UNK (STRENGTH: 0.3M)
     Route: 048
  10. MIDAZOLAM. [Suspect]
     Active Substance: MIDAZOLAM
     Indication: INDUCTION OF ANAESTHESIA
     Dosage: UNK?SMALL ALIQUOTS OF MIDAZOLAM
     Route: 065
  11. LIDOCAINE. [Suspect]
     Active Substance: LIDOCAINE
     Dosage: 250 MILLIGRAM? SPRAY
     Route: 065
  12. ATRACURIUM BESILATE [Suspect]
     Active Substance: ATRACURIUM BESYLATE
     Indication: MUSCLE RELAXANT THERAPY
     Dosage: 15 MILLIGRAM
     Route: 065

REACTIONS (2)
  - Normal newborn [Unknown]
  - Maternal exposure during pregnancy [Unknown]
